FAERS Safety Report 17494187 (Version 1)
Quarter: 2020Q1

REPORT INFORMATION
  Report Type: Spontaneous
  Country: FR (occurrence: FR)
  Receive Date: 20200304
  Receipt Date: 20200304
  Transmission Date: 20200409
  Serious: Yes (Hospitalization, Other)
  Sender: FDA-Public Use
  Company Number: FR-SA-2020SA054450

PATIENT
  Age: 30 Year
  Weight: 130 kg

DRUGS (6)
  1. ELOCTA [Suspect]
     Active Substance: EFMOROCTOCOG ALFA
     Dosage: 23 IU/KG (AT D2)
     Route: 065
  2. ELOCTA [Suspect]
     Active Substance: EFMOROCTOCOG ALFA
     Indication: PROPHYLAXIS
     Dosage: 46 IU/KG (PREOPERATIVE DOSE)
     Route: 065
  3. ELOCTA [Suspect]
     Active Substance: EFMOROCTOCOG ALFA
     Dosage: 30 IU/KG, TIW
     Route: 065
  4. ELOCTA [Suspect]
     Active Substance: EFMOROCTOCOG ALFA
     Indication: FACTOR VIII DEFICIENCY
     Dosage: UNK
     Route: 065
  5. ELOCTA [Suspect]
     Active Substance: EFMOROCTOCOG ALFA
     Dosage: 62 IU/KG (OPERATIVE DOSE)
     Route: 065
  6. ELOCTA [Suspect]
     Active Substance: EFMOROCTOCOG ALFA
     Dosage: 30 IU/KG (AT D1 AND D4)
     Route: 065

REACTIONS (2)
  - Gastric bypass [Unknown]
  - Melaena [Unknown]
